FAERS Safety Report 18693274 (Version 2)
Quarter: 2021Q1

REPORT INFORMATION
  Report Type: Spontaneous
  Country: AT (occurrence: AT)
  Receive Date: 20210104
  Receipt Date: 20210107
  Transmission Date: 20210419
  Serious: Yes (Other)
  Sender: FDA-Public Use
  Company Number: AT-JNJFOC-20201255624

PATIENT
  Age: 46 Year
  Sex: Male
  Weight: 104 kg

DRUGS (4)
  1. SIMPONI [Suspect]
     Active Substance: GOLIMUMAB
     Indication: ANKYLOSING SPONDYLITIS
     Route: 058
     Dates: start: 201203
  2. BLOPRESS [Concomitant]
     Active Substance: CANDESARTAN CILEXETIL
  3. NEBIVOLOL. [Concomitant]
     Active Substance: NEBIVOLOL
  4. SIMPONI [Suspect]
     Active Substance: GOLIMUMAB
     Indication: SPONDYLITIS

REACTIONS (2)
  - Pulmonary tuberculosis [Not Recovered/Not Resolved]
  - X-ray abnormal [Not Recovered/Not Resolved]

NARRATIVE: CASE EVENT DATE: 20200818
